FAERS Safety Report 21596739 (Version 1)
Quarter: 2022Q4

REPORT INFORMATION
  Report Type: Report from Study
  Country: JP (occurrence: JP)
  Receive Date: 20221115
  Receipt Date: 20221115
  Transmission Date: 20230112
  Serious: Yes (Other)
  Sender: FDA-Public Use
  Company Number: JP-TAKEDA-2022TJP076790

PATIENT

DRUGS (1)
  1. NIRAPARIB [Suspect]
     Active Substance: NIRAPARIB
     Indication: Ovarian cancer
     Dosage: UNK
     Route: 048

REACTIONS (5)
  - Ovarian cancer [Unknown]
  - Ovarian cancer recurrent [Unknown]
  - Condition aggravated [Unknown]
  - Myelosuppression [Unknown]
  - Haematotoxicity [Unknown]
